FAERS Safety Report 11916454 (Version 4)
Quarter: 2016Q1

REPORT INFORMATION
  Report Type: Spontaneous
  Country: CH (occurrence: CH)
  Receive Date: 20160114
  Receipt Date: 20160301
  Transmission Date: 20160526
  Serious: Yes (Other)
  Sender: FDA-Public Use
  Company Number: CH-PFIZER INC-2016013258

PATIENT
  Age: 50 Year
  Sex: Female

DRUGS (1)
  1. SAYANA [Suspect]
     Active Substance: MEDROXYPROGESTERONE
     Indication: CONTRACEPTION
     Dosage: 1 DF, EVERY 3 MONTHS
     Route: 030
     Dates: start: 20140207

REACTIONS (3)
  - Incorrect route of drug administration [Unknown]
  - Injection site reaction [Unknown]
  - Injection site necrosis [Unknown]
